FAERS Safety Report 4738357-4 (Version None)
Quarter: 2005Q3

REPORT INFORMATION
  Report Type: 
  Country: None (occurrence: None)
  Receive Date: 20050803
  Receipt Date: 20050719
  Transmission Date: 20060218
  Serious: Yes (Hospitalization, Other)
  Sender: FDA-Public Use
  Company Number: AU-2005-015058

PATIENT
  Age: 46 Year
  Sex: Female

DRUGS (1)
  1. BETASERON [Suspect]
     Indication: MULTIPLE SCLEROSIS
     Dosage: 3X/WEEK, SUBCUTANEOUS
     Route: 058

REACTIONS (7)
  - ABDOMINAL TENDERNESS [None]
  - CELLULITIS [None]
  - INJECTION SITE REACTION [None]
  - LICHEN MYXOEDEMATOSUS [None]
  - SKIN NECROSIS [None]
  - SKIN ULCER [None]
  - THROMBOTIC MICROANGIOPATHY [None]
